FAERS Safety Report 8127881-2 (Version None)
Quarter: 2012Q1

REPORT INFORMATION
  Report Type: 
  Country: None (occurrence: None)
  Receive Date: 20120210
  Receipt Date: 20111129
  Transmission Date: 20120608
  Serious: No
  Sender: FDA-Public Use
  Company Number: US-GLAXOSMITHKLINE-A0955777A

PATIENT
  Age: 32 Year
  Sex: Male

DRUGS (3)
  1. PAROXETINE [Suspect]
     Indication: DEPRESSION
     Dosage: 37.5MG PER DAY
     Route: 048
     Dates: start: 20071101, end: 20091001
  2. NO CONCURRENT MEDICATION [Concomitant]
  3. PAXIL [Suspect]
     Indication: DEPRESSION
     Dosage: 37MG PER DAY
     Route: 048
     Dates: start: 20091101

REACTIONS (7)
  - TREATMENT NONCOMPLIANCE [None]
  - INSOMNIA [None]
  - HYPERSOMNIA [None]
  - DRUG INEFFECTIVE [None]
  - MOVEMENT DISORDER [None]
  - WEIGHT INCREASED [None]
  - TIC [None]
